FAERS Safety Report 7364625-6 (Version None)
Quarter: 2011Q1

REPORT INFORMATION
  Report Type: 
  Country: None (occurrence: None)
  Receive Date: 20110315
  Receipt Date: 20110315
  Transmission Date: 20110831
  Serious: Yes (Hospitalization)
  Sender: FDA-Public Use
  Company Number: None

PATIENT
  Sex: Female
  Weight: 55.9 kg

DRUGS (7)
  1. ABRAXANE [Suspect]
  2. AVASTIN [Suspect]
  3. TIMOPTIC [Concomitant]
  4. OMEPRAZOLE [Concomitant]
  5. RESTASIS [Concomitant]
  6. RECLAST [Concomitant]
  7. CALCIUM + D [Concomitant]

REACTIONS (1)
  - ANGIOEDEMA [None]
